FAERS Safety Report 4546381-X (Version None)
Quarter: 2005Q1

REPORT INFORMATION
  Report Type: 
  Country: None (occurrence: None)
  Receive Date: 20050103
  Receipt Date: 20041213
  Transmission Date: 20050727
  Serious: Yes (Other)
  Sender: FDA-Public Use
  Company Number: EWC041241872

PATIENT
  Age: 73 Year
  Sex: Female

DRUGS (4)
  1. FORTEO [Suspect]
     Indication: OSTEOPOROSIS
     Dosage: 20 UG/1 DAY
     Dates: start: 20041013, end: 20041013
  2. STILNOCT (ZOLPIDEM TARTRATE) [Concomitant]
  3. ALVEDON (PARACETAMOL) [Concomitant]
  4. OPTINATE SEPTIMUM (RISEDRONATE) [Concomitant]

REACTIONS (1)
  - ASTHENIA [None]
